FAERS Safety Report 5296106-8 (Version None)
Quarter: 2007Q1

REPORT INFORMATION
  Report Type: 
  Country: None (occurrence: None)
  Receive Date: 20070201
  Receipt Date: 20061020
  Transmission Date: 20070707
  Serious: No
  Sender: FDA-Public Use
  Company Number: 2006PV023661

PATIENT
  Age: 45 Year
  Sex: Female
  Weight: 112.0385 kg

DRUGS (4)
  1. BYETTA [Suspect]
     Indication: DIABETES MELLITUS NON-INSULIN-DEPENDENT
     Dosage: SEE IMAGE
     Route: 058
     Dates: start: 20060914, end: 20061013
  2. BYETTA [Suspect]
     Indication: DIABETES MELLITUS NON-INSULIN-DEPENDENT
     Dosage: SEE IMAGE
     Route: 058
     Dates: start: 20061014
  3. NOVOLIN 70/30 [Concomitant]
  4. LORTAB [Concomitant]

REACTIONS (8)
  - DIZZINESS [None]
  - DRUG EFFECT DECREASED [None]
  - HEADACHE [None]
  - MENSTRUATION IRREGULAR [None]
  - METRORRHAGIA [None]
  - NAUSEA [None]
  - VOMITING [None]
  - WEIGHT DECREASED [None]
